FAERS Safety Report 4877225-4 (Version None)
Quarter: 2005Q4

REPORT INFORMATION
  Report Type: 
  Country: None (occurrence: None)
  Receive Date: 20051206
  Receipt Date: 20050927
  Transmission Date: 20060501
  Serious: No
  Sender: FDA-Public Use
  Company Number: USA050496415

PATIENT
  Age: 66 Year
  Sex: Male
  Weight: 106 kg

DRUGS (4)
  1. CYMBALTA [Suspect]
     Indication: BIPOLAR DISORDER
     Dosage: 60 MG
     Dates: start: 20050103, end: 20050301
  2. COD-LIVER OIL [Concomitant]
  3. TRILEPTAL [Concomitant]
  4. ASPIRIN [Concomitant]

REACTIONS (1)
  - BLOOD PRESSURE INCREASED [None]
